FAERS Safety Report 7277275-7 (Version None)
Quarter: 2011Q1

REPORT INFORMATION
  Report Type: 
  Country: None (occurrence: None)
  Receive Date: 20110202
  Receipt Date: 20110202
  Transmission Date: 20110831
  Serious: Yes (Other)
  Sender: FDA-Public Use
  Company Number: None

PATIENT
  Age: 9 Year
  Sex: Female
  Weight: 26.7622 kg

DRUGS (1)
  1. PEDIACARE CHILDREN'S MULTI-SYMPTOM COLD [Suspect]
     Indication: NASOPHARYNGITIS
     Dosage: 2 TEASPOONS ONCE PO
     Route: 048
     Dates: start: 20110127, end: 20110127

REACTIONS (5)
  - TREMOR [None]
  - HEART RATE IRREGULAR [None]
  - HEART RATE INCREASED [None]
  - PARAESTHESIA [None]
  - DYSKINESIA [None]
